FAERS Safety Report 7113281-0 (Version None)
Quarter: 2010Q4

REPORT INFORMATION
  Report Type: 
  Country: None (occurrence: None)
  Receive Date: 20101119
  Receipt Date: 20100523
  Transmission Date: 20110411
  Serious: No
  Sender: FDA-Public Use
  Company Number: A0863852A

PATIENT
  Sex: Female

DRUGS (3)
  1. BUPROPION [Suspect]
     Indication: DEPRESSION
     Dosage: 150MG TWICE PER DAY
     Route: 065
  2. WELLBUTRIN SR [Suspect]
     Indication: DEPRESSION
     Dosage: 150MG TWICE PER DAY
     Route: 065
  3. UNSPECIFIED [Concomitant]

REACTIONS (4)
  - ADVERSE EVENT [None]
  - DRUG INEFFECTIVE [None]
  - ECONOMIC PROBLEM [None]
  - PRODUCT SUBSTITUTION ISSUE [None]
